FAERS Safety Report 6939104-8 (Version None)
Quarter: 2010Q3

REPORT INFORMATION
  Report Type: 
  Country: None (occurrence: None)
  Receive Date: 20100824
  Receipt Date: 20100816
  Transmission Date: 20110219
  Serious: Yes (Other)
  Sender: FDA-Public Use
  Company Number: US-TEVA-244934USA

PATIENT

DRUGS (1)
  1. BUPROPION HYDROCHLORIDE 75 MG + 100 MG TABLETS [Suspect]
     Dosage: 100 MG DAILY
     Route: 064

REACTIONS (1)
  - SUPRAVENTRICULAR EXTRASYSTOLES [None]
